FAERS Safety Report 4983784-3 (Version None)
Quarter: 2006Q1

REPORT INFORMATION
  Report Type: 
  Country: None (occurrence: None)
  Receive Date: 20060302
  Receipt Date: 20060125
  Transmission Date: 20060701
  Serious: No
  Sender: FDA-Public Use
  Company Number: PHEH2006US01361

PATIENT
  Age: 60 Year
  Sex: Female
  Weight: 83.6 kg

DRUGS (6)
  1. EXJADE [Suspect]
     Indication: MYELODYSPLASTIC SYNDROME
     Dosage: 2000 MG, QD, ORAL
     Route: 048
     Dates: start: 20060105
  2. ASPIRIN [Concomitant]
  3. DIPHENHYDRAMINE HCL [Concomitant]
  4. ALEVE [Concomitant]
  5. LEVOTHROID [Concomitant]
  6. TRAZODONE HCL [Concomitant]

REACTIONS (4)
  - ABDOMINAL PAIN UPPER [None]
  - CONSTIPATION [None]
  - DIARRHOEA [None]
  - NAUSEA [None]
